FAERS Safety Report 23658066 (Version 1)
Quarter: 2024Q1

REPORT INFORMATION
  Report Type: Spontaneous
  Country: US (occurrence: US)
  Receive Date: 20240321
  Receipt Date: 20240321
  Transmission Date: 20240410
  Serious: No
  Sender: FDA-Public Use
  Company Number: US-TEVA-VS-3148544

PATIENT
  Age: 84 Year
  Sex: Male

DRUGS (2)
  1. MUPIROCIN [Suspect]
     Active Substance: MUPIROCIN
     Indication: Product used for unknown indication
     Dosage: TIME INTERVAL: 0.33333333 DAYS
     Route: 065
  2. Hydrocortisone 2.5 [Concomitant]

REACTIONS (6)
  - Wrong technique in product usage process [Unknown]
  - Skin haemorrhage [Unknown]
  - Infection [Unknown]
  - Rash macular [Unknown]
  - Adverse event [Unknown]
  - Condition aggravated [Unknown]
